FAERS Safety Report 21949010 (Version 1)
Quarter: 2023Q1

REPORT INFORMATION
  Report Type: Report from Study
  Country: CA (occurrence: CA)
  Receive Date: 20230203
  Receipt Date: 20230203
  Transmission Date: 20230418
  Serious: Yes (Other)
  Sender: FDA-Public Use
  Company Number: CA-ABBVIE-4292105

PATIENT
  Sex: Female

DRUGS (1)
  1. HUMIRA [Suspect]
     Active Substance: ADALIMUMAB
     Indication: Psoriasis
     Route: 058
     Dates: start: 20180319, end: 202212

REACTIONS (3)
  - Oesophageal neoplasm [Unknown]
  - Dysphagia [Unknown]
  - Throat tightness [Unknown]
